FAERS Safety Report 8473833-2 (Version None)
Quarter: 2012Q2

REPORT INFORMATION
  Report Type: 
  Country: None (occurrence: None)
  Receive Date: 20120628
  Receipt Date: 20120109
  Transmission Date: 20120825
  Serious: Yes (Life-Threatening, Other)
  Sender: FDA-Public Use
  Company Number: US-MYLANLABS-2011S1025717

PATIENT
  Age: 20 Year
  Sex: Female

DRUGS (4)
  1. CLOZAPINE [Suspect]
     Indication: SCHIZOPHRENIA
     Route: 048
     Dates: start: 20091001, end: 20111201
  2. BENZTROPINE MESYLATE [Concomitant]
  3. TOPAMAX [Concomitant]
  4. VYVANSE [Concomitant]

REACTIONS (3)
  - GRANULOCYTOPENIA [None]
  - LEUKOPENIA [None]
  - AGRANULOCYTOSIS [None]
